FAERS Safety Report 9233500 (Version 1)
Quarter: 2013Q2

REPORT INFORMATION
  Report Type: Spontaneous
  Country: US (occurrence: US)
  Receive Date: 20130416
  Receipt Date: 20130416
  Transmission Date: 20140414
  Serious: No
  Sender: FDA-Public Use
  Company Number: US-MYLANLABS-2013S1004184

PATIENT
  Sex: Female

DRUGS (1)
  1. PAROXETINE TABLETS USP [Suspect]

REACTIONS (2)
  - Depression [Recovered/Resolved]
  - Anxiety [Recovering/Resolving]
